FAERS Safety Report 9127329 (Version 1)
Quarter: 2013Q1

REPORT INFORMATION
  Report Type: Spontaneous
  Country: US (occurrence: US)
  Receive Date: 20130228
  Receipt Date: 20130228
  Transmission Date: 20140127
  Serious: No
  Sender: FDA-Public Use
  Company Number: US-GLAXOSMITHKLINE-A0968994A

PATIENT
  Age: 54 Year
  Sex: Female

DRUGS (10)
  1. LAMICTAL [Suspect]
     Indication: EPILEPSY
     Dosage: 400MG TWICE PER DAY
     Route: 048
     Dates: start: 200703
  2. DILANTIN [Concomitant]
  3. VIMPAT [Concomitant]
  4. TRENTAL [Concomitant]
  5. RELAFEN [Concomitant]
  6. AMITRIPTYLINE [Concomitant]
  7. ZOLOFT [Concomitant]
  8. LASIX [Concomitant]
  9. MULTI VITAMINS [Concomitant]
  10. PROMETRIUM [Concomitant]

REACTIONS (2)
  - Gingival recession [Not Recovered/Not Resolved]
  - Tooth malformation [Unknown]
